FAERS Safety Report 5571793-5 (Version None)
Quarter: 2007Q4

REPORT INFORMATION
  Report Type: 
  Country: None (occurrence: None)
  Receive Date: 20071221
  Receipt Date: 20071213
  Transmission Date: 20080405
  Serious: Yes (Hospitalization)
  Sender: FDA-Public Use
  Company Number: B0500348A

PATIENT
  Age: 38 Year
  Sex: Male

DRUGS (2)
  1. LAMIVUDINE + ZIDOVUDINE [Suspect]
     Indication: HIV INFECTION
     Route: 065
  2. EFAVIRENZ [Suspect]
     Indication: HIV INFECTION
     Route: 065

REACTIONS (7)
  - DYSPHAGIA [None]
  - IMMUNE RECONSTITUTION SYNDROME [None]
  - NIGHT SWEATS [None]
  - NON-HODGKIN'S LYMPHOMA [None]
  - ORAL PAIN [None]
  - PYREXIA [None]
  - WEIGHT DECREASED [None]
